FAERS Safety Report 15929971 (Version 5)
Quarter: 2019Q2

REPORT INFORMATION
  Report Type: Spontaneous
  Country: US (occurrence: US)
  Receive Date: 20190206
  Receipt Date: 20190521
  Transmission Date: 20190711
  Serious: Yes (Hospitalization)
  Sender: FDA-Public Use
  Company Number: US-PRINSTON PHARMACEUTICAL INC.-2019PRN00114

PATIENT
  Sex: Female
  Weight: 81.63 kg

DRUGS (12)
  1. VALSARTAN. [Suspect]
     Active Substance: VALSARTAN
     Indication: HYPERTENSION
     Dosage: 160 MG, 1X/DAY IN THE EVENING
     Route: 048
     Dates: end: 2018
  2. VALSARTAN. [Suspect]
     Active Substance: VALSARTAN
     Indication: HYPERTENSION
     Dosage: 1 DOSAGE UNITS, 1X/DAY IN THE EVENING
     Route: 048
     Dates: end: 2018
  3. LOSARTAN POTASSIUM. [Suspect]
     Active Substance: LOSARTAN POTASSIUM
     Indication: HYPERTENSION
     Dosage: UNK
     Dates: start: 2018, end: 2018
  4. UNSPECIFIED STOOL SOFTENER [Concomitant]
     Dosage: UNK, 1X/DAY
  5. DICLOFENAC SODIUM GEL [Concomitant]
     Active Substance: DICLOFENAC SODIUM
     Indication: PAIN IN EXTREMITY
     Dosage: UNK, 2X/DAY
     Route: 061
  6. VITAMIN D [Concomitant]
     Active Substance: VITAMIN D NOS
     Dosage: 50000 IU, 1X/WEEK
  7. VALSARTAN AND HYDROCHLOROTHIAZIDE [Suspect]
     Active Substance: HYDROCHLOROTHIAZIDE\VALSARTAN
     Indication: HYPERTENSION
     Dosage: 1 DOSAGE UNITS, 1X/DAY IN THE MORNING
  8. UNKNOWN MULTIVITAMINS [Concomitant]
     Dosage: UNK, 1X/DAY
  9. FLEXERIL [Concomitant]
     Active Substance: CYCLOBENZAPRINE HYDROCHLORIDE
     Indication: MYALGIA
     Dosage: UNK, AS NEEDED
  10. VALSARTAN. [Suspect]
     Active Substance: VALSARTAN
     Dosage: 40 MG, 2X/DAY (AT TIMES, ALTERNATING WITH 80 MG, ONCE DAILY)
     Dates: end: 2018
  11. VALSARTAN. [Suspect]
     Active Substance: VALSARTAN
     Dosage: 80 MG, 1X/DAY (AT TIMES, ALTERNATING WITH 40 MG, TWICE DAILY)
     Dates: end: 2018
  12. ALEVE [Concomitant]
     Active Substance: NAPROXEN SODIUM
     Dosage: UNK, AS NEEDED

REACTIONS (9)
  - Osteoarthritis [Not Recovered/Not Resolved]
  - Blood pressure decreased [Unknown]
  - Breast cancer female [Not Recovered/Not Resolved]
  - Osteoporosis [Not Recovered/Not Resolved]
  - Heart rate decreased [Unknown]
  - Ventricular extrasystoles [Not Recovered/Not Resolved]
  - Trigeminal neuralgia [Not Recovered/Not Resolved]
  - Basal cell carcinoma [Not Recovered/Not Resolved]
  - Recalled product administered [Recovered/Resolved]

NARRATIVE: CASE EVENT DATE: 2018
